FAERS Safety Report 15467885 (Version 1)
Quarter: 2018Q4

REPORT INFORMATION
  Report Type: Spontaneous
  Country: US (occurrence: US)
  Receive Date: 20181001
  Receipt Date: 20181001
  Transmission Date: 20190204
  Serious: Yes (Hospitalization)
  Sender: FDA-Public Use
  Company Number: None

PATIENT
  Age: 68 Year
  Sex: Female

DRUGS (7)
  1. FAMOTIDINE. [Concomitant]
     Active Substance: FAMOTIDINE
  2. LETROZOLE. [Concomitant]
     Active Substance: LETROZOLE
  3. LEVOFLOXACIN. [Concomitant]
     Active Substance: LEVOFLOXACIN
  4. PANTOPRAZOLE [Concomitant]
     Active Substance: PANTOPRAZOLE
  5. IBRANCE [Suspect]
     Active Substance: PALBOCICLIB
     Indication: BREAST CANCER
     Dosage: ?          OTHER FREQUENCY:QD X21DAYS;?
     Route: 048
     Dates: start: 20180725
  6. LIDOCAINE. [Concomitant]
     Active Substance: LIDOCAINE
  7. GENERALAC [Concomitant]

REACTIONS (2)
  - Fall [None]
  - Blood pressure increased [None]

NARRATIVE: CASE EVENT DATE: 2018
